FAERS Safety Report 7208401-3 (Version None)
Quarter: 2011Q1

REPORT INFORMATION
  Report Type: 
  Country: None (occurrence: None)
  Receive Date: 20110104
  Receipt Date: 20101227
  Transmission Date: 20110831
  Serious: Yes (Hospitalization)
  Sender: FDA-Public Use
  Company Number: PHEH2010US03344

PATIENT
  Sex: Female

DRUGS (1)
  1. TOBI [Suspect]
     Indication: CYSTIC FIBROSIS
     Dosage: 300 MG, 28 DAYS ON 28 DAYS OFF
     Dates: start: 20090319

REACTIONS (10)
  - DYSPHONIA [None]
  - INFECTION [None]
  - DYSPNOEA [None]
  - FATIGUE [None]
  - HYPERSENSITIVITY [None]
  - WHEEZING [None]
  - CHOLELITHIASIS [None]
  - EAR DISCOMFORT [None]
  - CHOLECYSTECTOMY [None]
  - APPENDICECTOMY [None]
